FAERS Safety Report 4780141-X (Version None)
Quarter: 2005Q3

REPORT INFORMATION
  Report Type: 
  Country: None (occurrence: None)
  Receive Date: 20050927
  Receipt Date: 20050915
  Transmission Date: 20060218
  Serious: Yes (Death, Hospitalization, Other)
  Sender: FDA-Public Use
  Company Number: DE-BRISTOL-MYERS SQUIBB COMPANY-13120522

PATIENT
  Age: 65 Year
  Sex: Male

DRUGS (4)
  1. GLUCOPHAGE [Suspect]
     Indication: DIABETES MELLITUS
     Dosage: DURATION OF THERAPY - MORE THAN ONE YEAR
     Route: 048
  2. AMARYL [Concomitant]
     Indication: DIABETES MELLITUS
     Dosage: DURATION OF THERAPY - YEARS
     Route: 048
  3. CONCOR [Concomitant]
     Indication: HYPERTENSION
     Dosage: DURATION OF THERAPY - YEARS
     Route: 048
  4. ARELIX ACE [Concomitant]
     Indication: HYPERTENSION
     Dosage: DURATION OF THERAPY - YEARS
     Route: 048

REACTIONS (11)
  - CARDIAC FAILURE [None]
  - COMA [None]
  - DEPRESSED LEVEL OF CONSCIOUSNESS [None]
  - DIARRHOEA [None]
  - HYPERKALAEMIA [None]
  - HYPOGLYCAEMIA [None]
  - LACTIC ACIDOSIS [None]
  - RECTAL HAEMORRHAGE [None]
  - RENAL FAILURE [None]
  - RESPIRATORY FAILURE [None]
  - VEIN DISORDER [None]
